FAERS Safety Report 13939838 (Version 7)
Quarter: 2018Q1

REPORT INFORMATION
  Report Type: Report from Study
  Country: JP (occurrence: JP)
  Receive Date: 20170906
  Receipt Date: 20180302
  Transmission Date: 20180508
  Serious: Yes (Hospitalization)
  Sender: FDA-Public Use
  Company Number: JP-AMGEN-JPNCT2016115552

PATIENT
  Age: 73 Year
  Sex: Female
  Weight: 55.6 kg

DRUGS (19)
  1. PANITUMUMAB [Suspect]
     Active Substance: PANITUMUMAB
     Dosage: 250 MG/KG, Q2WK
     Route: 041
     Dates: start: 20160810, end: 20160810
  2. CALCIUM LEVOFOLINATE [Suspect]
     Active Substance: LEVOLEUCOVORIN CALCIUM
     Indication: RECTAL CANCER
     Dosage: 275 MG, Q2WEEKS
     Route: 041
     Dates: start: 20160512, end: 20160713
  3. MOSAPRIDE CITRATE [Concomitant]
     Active Substance: MOSAPRIDE CITRATE
     Indication: CHRONIC GASTRITIS
     Dosage: UNK, TID
     Route: 048
  4. OXALIPLATIN. [Suspect]
     Active Substance: OXALIPLATIN
     Dosage: 97 MG, Q2WEEKS
     Route: 041
     Dates: start: 20160810, end: 20161114
  5. DEXAMETHASONE. [Concomitant]
     Active Substance: DEXAMETHASONE
     Indication: NAUSEA
     Dosage: UNK
     Route: 048
  6. FLUOROURACIL. [Suspect]
     Active Substance: FLUOROURACIL
     Dosage: 460 MG, Q2WK
     Route: 040
     Dates: start: 20160810, end: 20161114
  7. FLUOROURACIL. [Suspect]
     Active Substance: FLUOROURACIL
     Dosage: 2750 MG, Q2WK
     Route: 041
     Dates: start: 20160810, end: 20161114
  8. CALCIUM LEVOFOLINATE [Suspect]
     Active Substance: LEVOLEUCOVORIN CALCIUM
     Dosage: 275 MG, Q2WEEKS
     Route: 041
     Dates: start: 20160810, end: 20161114
  9. MOSAPRIDE CITRATE [Concomitant]
     Active Substance: MOSAPRIDE CITRATE
     Dosage: UNK, TID
     Route: 048
  10. SULPIRIDE [Concomitant]
     Active Substance: SULPIRIDE
     Indication: GASTRIC ULCER
     Dosage: UNK
     Route: 048
  11. SODIUM GUALENATE [Concomitant]
     Active Substance: SODIUM GUALENATE
     Indication: PROPHYLAXIS
     Dosage: UNK
     Route: 049
  12. TEPRENONE [Concomitant]
     Active Substance: TEPRENONE
     Dosage: UNK
     Route: 048
  13. PANITUMUMAB [Suspect]
     Active Substance: PANITUMUMAB
     Indication: RECTAL CANCER
     Dosage: 330 MG, Q2WK
     Route: 041
     Dates: start: 20160512, end: 20160713
  14. FLUOROURACIL. [Suspect]
     Active Substance: FLUOROURACIL
     Indication: RECTAL CANCER
     Dosage: 550 MG, Q2WEEKS
     Route: 040
     Dates: start: 20160512, end: 20160713
  15. RABEPRAZOLE SODIUM. [Concomitant]
     Active Substance: RABEPRAZOLE SODIUM
     Indication: GASTRIC ULCER
     Dosage: 10 MG, QD
     Route: 048
  16. OXALIPLATIN. [Suspect]
     Active Substance: OXALIPLATIN
     Indication: RECTAL CANCER
     Dosage: 120 MG, Q2WEEKS
     Route: 041
     Dates: start: 20160512, end: 20160713
  17. FLUOROURACIL. [Suspect]
     Active Substance: FLUOROURACIL
     Dosage: 3550 MG, Q2WEEKS
     Route: 041
     Dates: start: 20160512, end: 20160713
  18. PANITUMUMAB [Suspect]
     Active Substance: PANITUMUMAB
     Dosage: 170 MG/KG, Q2WK
     Route: 041
     Dates: start: 20160824, end: 20161013
  19. TEPRENONE [Concomitant]
     Active Substance: TEPRENONE
     Indication: GASTRIC ULCER
     Dosage: UNK
     Route: 048

REACTIONS (12)
  - Fatigue [Not Recovered/Not Resolved]
  - Melaena [Not Recovered/Not Resolved]
  - Alopecia [Not Recovered/Not Resolved]
  - Constipation [Not Recovered/Not Resolved]
  - Dermatitis acneiform [Not Recovered/Not Resolved]
  - Oedema peripheral [Not Recovered/Not Resolved]
  - Decreased appetite [Not Recovered/Not Resolved]
  - Stomatitis [Not Recovered/Not Resolved]
  - Peripheral sensory neuropathy [Recovered/Resolved]
  - Neutrophil count decreased [Recovered/Resolved]
  - Dizziness [Not Recovered/Not Resolved]
  - Diarrhoea [Recovered/Resolved]

NARRATIVE: CASE EVENT DATE: 20161207
